FAERS Safety Report 5265287-4 (Version None)
Quarter: 2007Q1

REPORT INFORMATION
  Report Type: 
  Country: None (occurrence: None)
  Receive Date: 20061213
  Receipt Date: 20030620
  Transmission Date: 20070707
  Serious: No
  Sender: FDA-Public Use
  Company Number: 2003UW07838

PATIENT
  Age: 55 Year
  Sex: Male
  Weight: 86.1834 kg

DRUGS (6)
  1. IRESSA [Suspect]
     Indication: NON-SMALL CELL LUNG CANCER
     Dates: start: 20030603, end: 20030610
  2. PEPCID [Concomitant]
  3. ATENOLOL [Concomitant]
  4. PAXIL [Concomitant]
  5. ASPIRIN [Concomitant]
  6. LEVOTHROID [Concomitant]

REACTIONS (1)
  - ALVEOLITIS [None]
